FAERS Safety Report 9013791 (Version 1)
Quarter: 2013Q1

REPORT INFORMATION
  Report Type: Spontaneous
  Country: US (occurrence: None)
  Receive Date: 20130108
  Receipt Date: 20130108
  Transmission Date: 20140127
  Serious: No
  Sender: FDA-Public Use
  Company Number: None

PATIENT
  Age: 50 Year
  Sex: Female
  Weight: 54.43 kg

DRUGS (1)
  1. HUMIRA PEN, 40/0.8 MG/ML, ABBOTT LABORATORIES - ADALIMUMAB - [Suspect]
     Dates: start: 20130106

REACTIONS (5)
  - Device malfunction [None]
  - Injection site reaction [None]
  - Injection site pain [None]
  - Injection site urticaria [None]
  - Drug administration error [None]
